FAERS Safety Report 23193860 (Version 2)
Quarter: 2023Q4

REPORT INFORMATION
  Report Type: Spontaneous
  Country: US (occurrence: US)
  Receive Date: 20231116
  Receipt Date: 20231127
  Transmission Date: 20240110
  Serious: No
  Sender: FDA-Public Use
  Company Number: US-HETERO-HET2023US03159

PATIENT
  Sex: Female

DRUGS (1)
  1. VENLAFAXINE [Suspect]
     Active Substance: VENLAFAXINE HYDROCHLORIDE
     Indication: Depression
     Dosage: 150 MILLIGRAM, QD
     Route: 048
     Dates: end: 202309

REACTIONS (4)
  - Adverse event [Recovering/Resolving]
  - Psychiatric symptom [Recovered/Resolved]
  - Crying [Recovered/Resolved]
  - Confusional state [Recovering/Resolving]
